FAERS Safety Report 9882746 (Version 1)
Quarter: 2014Q1

REPORT INFORMATION
  Report Type: Spontaneous
  Country: US (occurrence: US)
  Receive Date: 20140207
  Receipt Date: 20140207
  Transmission Date: 20141002
  Serious: No
  Sender: FDA-Public Use
  Company Number: US-VERTEX PHARMACEUTICALS INC-2014-000526

PATIENT
  Age: 56 Year
  Sex: Female
  Weight: 84.81 kg

DRUGS (3)
  1. INCIVEK [Suspect]
     Indication: HEPATITIS C
     Dosage: 2 DF, TID
     Dates: start: 20140113, end: 20140122
  2. COPEGUS [Suspect]
     Indication: HEPATITIS C
     Dosage: 1000 MG, QD
     Dates: start: 20140113, end: 20140122
  3. PEGASYS [Suspect]
     Indication: HEPATITIS C
     Dosage: 180 ?G, QW
     Dates: start: 20140113, end: 20140122

REACTIONS (7)
  - Pyrexia [Unknown]
  - Urticaria [Unknown]
  - Diarrhoea [Unknown]
  - Vomiting [Unknown]
  - Anal pruritus [Unknown]
  - Rash generalised [Unknown]
  - Nausea [Unknown]
